FAERS Safety Report 7828193-4 (Version None)
Quarter: 2011Q4

REPORT INFORMATION
  Report Type: 
  Country: None (occurrence: None)
  Receive Date: 20111020
  Receipt Date: 20111006
  Transmission Date: 20120403
  Serious: Yes (Other)
  Sender: FDA-Public Use
  Company Number: US-ELI_LILLY_AND_COMPANY-US201107004661

PATIENT
  Sex: Female

DRUGS (7)
  1. FORTEO [Suspect]
     Dosage: 20 UG, QD
     Route: 065
     Dates: end: 20110501
  2. FORTEO [Suspect]
     Dosage: 20 UG, QD
     Route: 065
  3. FORTEO [Suspect]
     Dosage: 20 UG, QD
     Route: 065
  4. FORTEO [Suspect]
     Dosage: 20 UG, QD
     Dates: start: 20111003
  5. FORTEO [Suspect]
     Dosage: 20 UG, QD
     Route: 065
     Dates: start: 20110601
  6. FORTEO [Suspect]
     Dosage: 20 UG, QD
     Dates: end: 20110803
  7. FORTEO [Suspect]
     Indication: OSTEOPOROSIS
     Dosage: 20 UG, QD
     Route: 065
     Dates: start: 20110301

REACTIONS (21)
  - WEIGHT INCREASED [None]
  - DRY MOUTH [None]
  - INSOMNIA [None]
  - RHINITIS [None]
  - SPINAL COLUMN STENOSIS [None]
  - PELVIC FRACTURE [None]
  - DRY THROAT [None]
  - ASTHENIA [None]
  - LARYNGITIS [None]
  - WEIGHT CONTROL [None]
  - BRONCHOPNEUMONIA [None]
  - FEELING ABNORMAL [None]
  - INTENTIONAL DRUG MISUSE [None]
  - THROAT IRRITATION [None]
  - RESPIRATORY TRACT CONGESTION [None]
  - DISCOMFORT [None]
  - ODYNOPHAGIA [None]
  - ALOPECIA [None]
  - ABDOMINAL DISTENSION [None]
  - WAIST CIRCUMFERENCE INCREASED [None]
  - NASAL DRYNESS [None]
